FAERS Safety Report 9085840 (Version 1)
Quarter: 2013Q1

REPORT INFORMATION
  Report Type: Spontaneous
  Country: US (occurrence: US)
  Receive Date: 20130201
  Receipt Date: 20130201
  Transmission Date: 20140127
  Serious: Yes (Other)
  Sender: FDA-Public Use
  Company Number: US-PFIZER INC-2013041798

PATIENT
  Age: 58 Year
  Sex: Male
  Weight: 147.4 kg

DRUGS (4)
  1. LYRICA [Suspect]
     Indication: DIABETIC NEUROPATHY
     Dosage: 50 MG, 1X/DAY
     Route: 048
     Dates: start: 20121215, end: 20130126
  2. NIFEDIPINE [Concomitant]
     Indication: HYPERTENSION
     Dosage: 60 MG
  3. GEMFIBROZIL [Concomitant]
     Indication: BLOOD CHOLESTEROL INCREASED
     Dosage: 600 MG, 2X/DAY
  4. METFORMIN [Concomitant]
     Indication: TYPE 2 DIABETES MELLITUS
     Dosage: 500 MG, 2X/DAY

REACTIONS (6)
  - Weight increased [Unknown]
  - Oedema peripheral [Unknown]
  - Dizziness [Recovered/Resolved]
  - Dry mouth [Unknown]
  - Pain [Unknown]
  - Drug ineffective [Unknown]
